FAERS Safety Report 6608207-X (Version None)
Quarter: 2010Q1

REPORT INFORMATION
  Report Type: 
  Country: None (occurrence: None)
  Receive Date: 20100301
  Receipt Date: 20100219
  Transmission Date: 20100710
  Serious: Yes (Hospitalization)
  Sender: FDA-Public Use
  Company Number: JP-ROCHE-646354

PATIENT
  Sex: Male

DRUGS (12)
  1. TOCILIZUMAB [Suspect]
     Indication: RHEUMATOID ARTHRITIS
     Route: 041
     Dates: start: 20081007, end: 20081007
  2. TOCILIZUMAB [Suspect]
     Route: 041
     Dates: start: 20081111, end: 20081111
  3. TOCILIZUMAB [Suspect]
     Route: 041
     Dates: start: 20081210, end: 20081210
  4. TOCILIZUMAB [Suspect]
     Route: 041
     Dates: start: 20090110, end: 20090110
  5. PREDNISOLONE [Suspect]
     Indication: RHEUMATOID ARTHRITIS
     Dosage: DOSE FORM: PERORAL AGENT.
     Route: 048
     Dates: start: 20081022, end: 20081205
  6. PREDNISOLONE [Suspect]
     Dosage: DOSE FORM: PERORAL  AGENT.
     Route: 048
     Dates: start: 20081206
  7. SODIUM BICARBONATE [Concomitant]
     Route: 048
  8. OMEPRAL [Concomitant]
     Dosage: FORM: ENTERIC
     Route: 048
  9. ROCALTROL [Concomitant]
     Route: 048
  10. ADALAT CC [Concomitant]
     Dosage: FORM: SUSTAINED RELEASE TABLET
     Route: 048
  11. LASIX [Concomitant]
     Dosage: FORM: ORAL FORMULATION
     Route: 048
  12. OLMETEC [Concomitant]
     Route: 048
     Dates: start: 20081015, end: 20081126

REACTIONS (2)
  - CARDIAC FAILURE [None]
  - URINARY TRACT INFECTION [None]
